FAERS Safety Report 17916030 (Version 1)
Quarter: 2020Q2

REPORT INFORMATION
  Report Type: Spontaneous
  Country: US (occurrence: US)
  Receive Date: 20200618
  Receipt Date: 20200618
  Transmission Date: 20200714
  Serious: No
  Sender: FDA-Public Use
  Company Number: None

PATIENT
  Age: 61 Year
  Sex: Female

DRUGS (1)
  1. KISQALI FEMARA CO-PACK [Suspect]
     Active Substance: LETROZOLE\RIBOCICLIB
     Indication: NEOPLASM MALIGNANT
     Dosage: ?          OTHER DOSE:1800/7.5MG;?
     Route: 048
     Dates: start: 20180724

REACTIONS (4)
  - Stomatitis [None]
  - Headache [None]
  - Dry mouth [None]
  - Rash [None]

NARRATIVE: CASE EVENT DATE: 20180724
